FAERS Safety Report 21873633 (Version 1)
Quarter: 2023Q1

REPORT INFORMATION
  Report Type: Spontaneous
  Country: US (occurrence: None)
  Receive Date: 20230116
  Receipt Date: 20230116
  Transmission Date: 20230417
  Serious: Yes (Hospitalization, Disabling, Other)
  Sender: FDA-Public Use
  Company Number: None

PATIENT
  Age: 24 Year
  Sex: Female
  Weight: 78.75 kg

DRUGS (1)
  1. ABILIFY [Suspect]
     Active Substance: ARIPIPRAZOLE
     Indication: Schizophrenia
     Route: 030

REACTIONS (12)
  - Injection site mass [None]
  - Injection site pain [None]
  - Hypersensitivity [None]
  - Injection site swelling [None]
  - Injection site erythema [None]
  - Injection site warmth [None]
  - Pain in extremity [None]
  - Tremor [None]
  - Weight increased [None]
  - Neuralgia [None]
  - Alopecia [None]
  - Chest pain [None]

NARRATIVE: CASE EVENT DATE: 20200101
